FAERS Safety Report 5445122-1 (Version None)
Quarter: 2007Q3

REPORT INFORMATION
  Report Type: 
  Country: None (occurrence: None)
  Receive Date: 20070730
  Receipt Date: 20070328
  Transmission Date: 20080115
  Serious: Yes (Other)
  Sender: FDA-Public Use
  Company Number: 239109

PATIENT
  Sex: Male

DRUGS (4)
  1. RITUXAN [Suspect]
     Indication: AUTOIMMUNE DISORDER
     Dosage: 375 MG/M2, 1/WEEK, INTRAVENOUS
     Route: 042
  2. ACETAMINOPHEN [Concomitant]
  3. DIHENHYDRAMINE (DIPHENHYDRAMINE NOS) [Concomitant]
  4. MESALAMINE [Concomitant]

REACTIONS (1)
  - STAPHYLOCOCCAL INFECTION [None]
